FAERS Safety Report 5076198-1 (Version None)
Quarter: 2006Q3

REPORT INFORMATION
  Report Type: 
  Country: None (occurrence: None)
  Receive Date: 20060725
  Receipt Date: 20060317
  Transmission Date: 20061208
  Serious: No
  Sender: FDA-Public Use
  Company Number: 200611667BWH

PATIENT
  Age: 75 Year
  Sex: Male
  Weight: 84.369 kg

DRUGS (4)
  1. NEXAVAR [Suspect]
     Indication: RENAL CELL CARCINOMA STAGE UNSPECIFIED
     Dosage: SEE IMAGE
     Route: 048
     Dates: start: 20060222, end: 20060304
  2. NEXAVAR [Suspect]
     Indication: RENAL CELL CARCINOMA STAGE UNSPECIFIED
     Dosage: SEE IMAGE
     Route: 048
     Dates: start: 20060313
  3. WYGESIC [Concomitant]
  4. XANAX [Concomitant]

REACTIONS (13)
  - ANAL DISCOMFORT [None]
  - DERMATITIS DIAPER [None]
  - DYSPHONIA [None]
  - ERYTHEMA [None]
  - GLOSSODYNIA [None]
  - ORAL PAIN [None]
  - PAIN IN EXTREMITY [None]
  - PAIN OF SKIN [None]
  - PRURITUS [None]
  - RECTAL LESION [None]
  - SKIN EXFOLIATION [None]
  - SKIN LESION [None]
  - STOMATITIS [None]
